FAERS Safety Report 4553683-X (Version None)
Quarter: 2004Q4

REPORT INFORMATION
  Report Type: 
  Country: None (occurrence: None)
  Receive Date: 20041227
  Receipt Date: 20040928
  Transmission Date: 20050328
  Serious: Yes (Other)
  Sender: FDA-Public Use
  Company Number: US-JNJFOC-20040703868

PATIENT
  Age: 70 Year
  Sex: Female

DRUGS (5)
  1. REOPRO [Suspect]
     Indication: MYOCARDIAL INFARCTION
     Dosage: INTRAVENOUS
     Route: 042
     Dates: start: 20040708, end: 20040708
  2. LOW MOLECULAR WEIGHT HEPARIN (HEPARIN SODIUM) [Suspect]
     Indication: CARDIAC DISORDER
     Dosage: 100 MG, 2 IN 1 DAY, SUBCUTANEOUS
     Route: 058
     Dates: start: 20040703, end: 20040712
  3. ACETYLSALICYLIC ACID SRT [Concomitant]
  4. PLAVIX [Concomitant]
  5. COUMADIN [Concomitant]

REACTIONS (1)
  - THROMBOCYTOPENIA [None]
